FAERS Safety Report 8909495 (Version 2)
Quarter: 2012Q4

REPORT INFORMATION
  Report Type: 
  Country: US (occurrence: US)
  Receive Date: 20121114
  Receipt Date: 20121120
  Transmission Date: 20130627
  Serious: No
  Sender: FDA-Public Use
  Company Number: US-009507513-1211USA005480

PATIENT
  Sex: Male

DRUGS (2)
  1. PEGINTRON [Suspect]
     Indication: HEPATITIS C
     Dosage: UNK
     Dates: start: 20120917
  2. RIBAVIRIN [Suspect]
     Indication: HEPATITIS C
     Dosage: UNK
     Route: 048
     Dates: start: 20120917

REACTIONS (7)
  - Glossodynia [Unknown]
  - Constipation [Unknown]
  - Dry mouth [Unknown]
  - Gingival disorder [Unknown]
  - Gingival disorder [Unknown]
  - Nausea [Unknown]
  - Nausea [Unknown]
